FAERS Safety Report 9949257 (Version 1)
Quarter: 2014Q1

REPORT INFORMATION
  Report Type: Spontaneous
  Country: US (occurrence: US)
  Receive Date: 20140304
  Receipt Date: 20140304
  Transmission Date: 20141002
  Serious: Yes (Hospitalization, Other)
  Sender: FDA-Public Use
  Company Number: US-BAYER-2014-031977

PATIENT
  Age: 82 Year
  Sex: Female

DRUGS (3)
  1. AVELOX [Suspect]
     Dosage: 400 MG, QD
     Dates: start: 201301, end: 2013
  2. CIPRO [Suspect]
     Dosage: UNK
  3. LASIX [Suspect]

REACTIONS (19)
  - Pulmonary mass [None]
  - Plasma cell myeloma [None]
  - Abasia [None]
  - Cardiac failure [None]
  - Myalgia [None]
  - Pain in extremity [None]
  - Chills [Not Recovered/Not Resolved]
  - Asthenia [None]
  - Dizziness [None]
  - Hallucination [None]
  - Local swelling [None]
  - Depression [None]
  - Paranoia [None]
  - Nightmare [None]
  - Insomnia [None]
  - Malaise [None]
  - Back pain [None]
  - Vertigo [None]
  - Diplopia [None]
